FAERS Safety Report 5090650-4 (Version None)
Quarter: 2006Q3

REPORT INFORMATION
  Report Type: 
  Country: None (occurrence: None)
  Receive Date: 20060828
  Receipt Date: 20060818
  Transmission Date: 20061208
  Serious: Yes (Other)
  Sender: FDA-Public Use
  Company Number: US-BRISTOL-MYERS SQUIBB COMPANY-13482633

PATIENT
  Sex: Male
  Weight: 2 kg

DRUGS (4)
  1. ATAZANAVIR [Suspect]
     Dosage: TRANPLACENTAL EXPOSURE DURATION: 36 WEEKS AND 5 DAYS
     Route: 064
  2. RITONAVIR [Suspect]
     Dosage: TRANPLACENTAL EXPOSURE DURATION: 36 WEEKS AND 5 DAYS
     Route: 064
  3. EPZICOM [Suspect]
     Dosage: TRANPLACENTAL EXPOSURE DURATION: 36 WEEKS AND 5 DAYS
     Route: 064
  4. ZIDOVUDINE [Suspect]
     Dosage: EXPOSURE TRANSPLACENTALLY 1 DOSE AT DELIVERY AND ORAL THERAPY CONT. AFTER BIRTH AT 4.6 MG Q 6 HRS.

REACTIONS (7)
  - DERMATITIS CONTACT [None]
  - HYPERBILIRUBINAEMIA [None]
  - HYPOGLYCAEMIA [None]
  - PREGNANCY [None]
  - PREMATURE BABY [None]
  - SEPSIS [None]
  - SMALL FOR DATES BABY [None]
